FAERS Safety Report 12654258 (Version 4)
Quarter: 2017Q2

REPORT INFORMATION
  Report Type: Report from Study
  Country: US (occurrence: US)
  Receive Date: 20160816
  Receipt Date: 20170616
  Transmission Date: 20170830
  Serious: Yes (Other)
  Sender: FDA-Public Use
  Company Number: US-ROCHE-1813485

PATIENT
  Age: 92 Year
  Sex: Male
  Weight: 67.19 kg

DRUGS (17)
  1. ATENOLOL. [Concomitant]
     Active Substance: ATENOLOL
     Indication: BLOOD PRESSURE MEASUREMENT
     Dosage: TAKES 1/2 TABLET 1 TIME DAILY
     Route: 048
  2. CLOPIDOGREL [Concomitant]
     Active Substance: CLOPIDOGREL BISULFATE
     Route: 048
     Dates: start: 2014
  3. FERROUS SULFATE. [Concomitant]
     Active Substance: FERROUS SULFATE
     Route: 048
     Dates: start: 2006
  4. VITAMIN B COMPLEX [Concomitant]
     Active Substance: CYANOCOBALAMIN\DEXPANTHENOL\NIACINAMIDE\PYRIDOXINE HYDROCHLORIDE\RIBOFLAVIN 5^-PHOSPHATE SODIUM\THIAMINE HYDROCHLORIDE\VITAMIN B COMPLEX
     Indication: NEUROPATHY PERIPHERAL
     Route: 048
  5. IPRATROPIUM BROMIDE. [Concomitant]
     Active Substance: IPRATROPIUM BROMIDE
     Dosage: USES SPRAY ONCE DAILY
     Route: 045
  6. SIMVASTATIN. [Concomitant]
     Active Substance: SIMVASTATIN
     Indication: BLOOD CHOLESTEROL
     Route: 048
  7. VITAMIN C [Concomitant]
     Active Substance: ASCORBIC ACID
     Route: 048
  8. ACIDOPHILUS [Concomitant]
     Active Substance: LACTOBACILLUS ACIDOPHILUS
     Route: 048
  9. CITALOPRAM [Concomitant]
     Active Substance: CITALOPRAM HYDROBROMIDE
     Indication: DEPRESSION
     Route: 048
  10. FISH OIL [Concomitant]
     Active Substance: FISH OIL
     Route: 048
  11. NITROSTAT [Concomitant]
     Active Substance: NITROGLYCERIN
     Indication: CHEST PAIN
     Route: 060
  12. PROAIR HFA [Concomitant]
     Active Substance: ALBUTEROL SULFATE
     Dosage: 2-3 PUFFS 4 TIMES DAILY
     Route: 055
  13. TRAZODONE [Concomitant]
     Active Substance: TRAZODONE HYDROCHLORIDE
     Dosage: TAKES 1 TABLET ONCE EACH EVENING
     Route: 048
  14. BIOTIN [Concomitant]
     Active Substance: BIOTIN
     Route: 065
  15. ESBRIET [Suspect]
     Active Substance: PIRFENIDONE
     Indication: IDIOPATHIC PULMONARY FIBROSIS
     Route: 048
     Dates: start: 201605
  16. ASPIRIN. [Concomitant]
     Active Substance: ASPIRIN
     Route: 048
  17. PREDNISONE. [Concomitant]
     Active Substance: PREDNISONE
     Route: 048

REACTIONS (17)
  - Headache [Unknown]
  - Gastrointestinal disorder [Unknown]
  - Gait disturbance [Not Recovered/Not Resolved]
  - Thyroid disorder [Not Recovered/Not Resolved]
  - Fatigue [Unknown]
  - Gait disturbance [Unknown]
  - Ill-defined disorder [Not Recovered/Not Resolved]
  - Erythema [Recovered/Resolved with Sequelae]
  - Diarrhoea [Unknown]
  - Bladder disorder [Unknown]
  - Dyspnoea [Recovered/Resolved with Sequelae]
  - Intestinal polyp [Unknown]
  - White blood cell count increased [Not Recovered/Not Resolved]
  - Red blood cell abnormality [Not Recovered/Not Resolved]
  - Decreased appetite [Unknown]
  - Rhinorrhoea [Unknown]
  - Asthenia [Not Recovered/Not Resolved]

NARRATIVE: CASE EVENT DATE: 2017
